FAERS Safety Report 5943098-1 (Version None)
Quarter: 2008Q4

REPORT INFORMATION
  Report Type: 
  Country: None (occurrence: None)
  Receive Date: 20081106
  Receipt Date: 20081031
  Transmission Date: 20090506
  Serious: Yes (Other)
  Sender: FDA-Public Use
  Company Number: US-BAYER-200834136NA

PATIENT
  Age: 44 Year
  Sex: Female

DRUGS (4)
  1. AVELOX [Suspect]
     Indication: DRUG USE FOR UNKNOWN INDICATION
     Dosage: TOTAL DAILY DOSE: 400 MG  UNIT DOSE: 400 MG
     Dates: start: 20080918, end: 20080918
  2. XANAX [Concomitant]
  3. PROVENTIL [Concomitant]
  4. SPIRIVA [Concomitant]

REACTIONS (1)
  - ANAPHYLACTIC REACTION [None]
